FAERS Safety Report 6366600-7 (Version None)
Quarter: 2009Q3

REPORT INFORMATION
  Report Type: 
  Country: None (occurrence: None)
  Receive Date: 20090921
  Receipt Date: 20090915
  Transmission Date: 20100115
  Serious: Yes (Life-Threatening, Hospitalization)
  Sender: FDA-Public Use
  Company Number: JP-ASTRAZENECA-2009SE13444

PATIENT
  Age: 75 Year
  Sex: Male

DRUGS (8)
  1. XYLOCAINE [Suspect]
     Indication: LOCAL ANAESTHESIA
     Route: 058
     Dates: start: 20090903, end: 20090903
  2. PEMIROC [Suspect]
     Indication: ANTICOAGULANT THERAPY
     Dosage: DOSE UNKNOWN
     Route: 050
     Dates: start: 20090903, end: 20090903
  3. PREDONINE [Concomitant]
     Route: 048
  4. GASLON N [Concomitant]
     Route: 048
  5. GLUFAST [Concomitant]
     Route: 048
     Dates: end: 20090908
  6. FULCALIQ 3 [Concomitant]
     Dosage: DOSE UNKNOWN
     Route: 042
  7. MINERALIN [Concomitant]
     Dosage: DOSE UNKNOWN
     Route: 042
  8. GASTER [Concomitant]
     Dosage: DOSE UNKNOWN
     Route: 065

REACTIONS (1)
  - OXYGEN SATURATION DECREASED [None]
